FAERS Safety Report 11222159 (Version 1)
Quarter: 2015Q2

REPORT INFORMATION
  Report Type: Report from Study
  Country: AR (occurrence: AR)
  Receive Date: 20150626
  Receipt Date: 20150626
  Transmission Date: 20150821
  Serious: Yes (Other)
  Sender: FDA-Public Use
  Company Number: PHHY2015AR074099

PATIENT
  Sex: Male

DRUGS (1)
  1. ILARIS [Suspect]
     Active Substance: CANAKINUMAB
     Indication: GOUT
     Dosage: 150 MG, QD
     Route: 065
     Dates: start: 20130829

REACTIONS (4)
  - Blood creatinine increased [Recovered/Resolved]
  - Anxiety [Unknown]
  - Vomiting [Recovered/Resolved]
  - Blood urea increased [Recovered/Resolved]
